FAERS Safety Report 19038254 (Version 1)
Quarter: 2021Q1

REPORT INFORMATION
  Report Type: Spontaneous
  Country: AT (occurrence: AT)
  Receive Date: 20210322
  Receipt Date: 20210322
  Transmission Date: 20210420
  Serious: Yes (Death)
  Sender: FDA-Public Use
  Company Number: AT-PFIZER INC-2020509841

PATIENT
  Age: 70 Year
  Sex: Male

DRUGS (1)
  1. BESPONSA [Suspect]
     Active Substance: INOTUZUMAB OZOGAMICIN
     Indication: LYMPHOMA
     Dosage: UNK

REACTIONS (4)
  - Blood bilirubin increased [Unknown]
  - Off label use [Unknown]
  - Leukaemic infiltration hepatic [Fatal]
  - Transaminases increased [Unknown]

NARRATIVE: CASE EVENT DATE: 2020
